FAERS Safety Report 9900343 (Version 2)
Quarter: 2014Q3

REPORT INFORMATION
  Report Type: Spontaneous
  Country: US (occurrence: US)
  Receive Date: 20140216
  Receipt Date: 20140808
  Transmission Date: 20150326
  Serious: No
  Sender: FDA-Public Use
  Company Number: US-009507513-1402USA007252

PATIENT
  Sex: Female
  Weight: 86.17 kg

DRUGS (1)
  1. NUVARING [Suspect]
     Active Substance: ETHINYL ESTRADIOL\ETONOGESTREL
     Indication: CONTRACEPTION
     Dosage: 1 RING, MONTHLY, LEAVE IN 21 DAYS, REMOVE 7 DAYS, REPEAT CYCLE
     Route: 067
     Dates: start: 20130426, end: 20131216

REACTIONS (5)
  - Pain [Unknown]
  - Deep vein thrombosis [Unknown]
  - Pleuritic pain [Recovered/Resolved]
  - Smear cervix abnormal [Unknown]
  - Irritable bowel syndrome [Unknown]

NARRATIVE: CASE EVENT DATE: 20131018
